FAERS Safety Report 12650912 (Version 1)
Quarter: 2016Q3

REPORT INFORMATION
  Report Type: Spontaneous
  Country: US (occurrence: None)
  Receive Date: 20160812
  Receipt Date: 20160812
  Transmission Date: 20161109
  Serious: Yes (Other)
  Sender: FDA-Public Use
  Company Number: None

PATIENT
  Age: 25 Year
  Sex: Female
  Weight: 56.7 kg

DRUGS (1)
  1. NUVARING [Suspect]
     Active Substance: ETHINYL ESTRADIOL\ETONOGESTREL
     Indication: CONTRACEPTION
     Dosage: 1 VAGINAL RING ONCE A MONTH
     Route: 067
     Dates: start: 20100101, end: 20160229

REACTIONS (4)
  - Lipoatrophy [None]
  - Discomfort [None]
  - Asthenia [None]
  - Injection site reaction [None]

NARRATIVE: CASE EVENT DATE: 20160225
